FAERS Safety Report 8577804-7 (Version None)
Quarter: 2012Q3

REPORT INFORMATION
  Report Type: 
  Country: None (occurrence: None)
  Receive Date: 20120808
  Receipt Date: 20120731
  Transmission Date: 20120928
  Serious: No
  Sender: FDA-Public Use
  Company Number: US-BIOGENIDEC-2012BI020240

PATIENT
  Age: 35 Year
  Sex: Female

DRUGS (4)
  1. OXYCODONE HCL [Concomitant]
     Indication: PAIN IN EXTREMITY
  2. TYSABRI [Suspect]
     Indication: MULTIPLE SCLEROSIS
     Route: 042
     Dates: start: 20120522
  3. OXYCODONE HCL [Concomitant]
     Indication: HAND FRACTURE
  4. OXYCODONE HCL [Concomitant]
     Indication: PAIN

REACTIONS (6)
  - ROAD TRAFFIC ACCIDENT [None]
  - CONTUSION [None]
  - PAIN IN EXTREMITY [None]
  - MYALGIA [None]
  - HAND FRACTURE [None]
  - LACERATION [None]
